FAERS Safety Report 15972471 (Version 1)
Quarter: 2019Q1

REPORT INFORMATION
  Report Type: Spontaneous
  Country: FR (occurrence: FR)
  Receive Date: 20190216
  Receipt Date: 20190216
  Transmission Date: 20190418
  Serious: Yes (Hospitalization)
  Sender: FDA-Public Use
  Company Number: FR-TEVA-2019-FR-1011216

PATIENT
  Age: 53 Year
  Sex: Female
  Weight: 50 kg

DRUGS (16)
  1. DOXORUBICINE TEVA [Suspect]
     Active Substance: DOXORUBICIN
     Indication: HODGKIN^S DISEASE STAGE IV
     Dosage: AT DAY 1, 2 AND 3 EVERY 28 DAYS (52 MG)
     Route: 042
     Dates: start: 20160816, end: 20160816
  2. ONDANSETRON ARROW 8 MG, COMPRIM? ORODISPERSIBLE [Suspect]
     Active Substance: ONDANSETRON
     Indication: PROPHYLAXIS OF NAUSEA AND VOMITING
     Dosage: 8 MILLIGRAM DAILY; AT DAY 1, 2 AND 3
     Route: 048
     Dates: start: 20160816, end: 20160817
  3. ZELITREX 500 MG, COMPRIM? ENROB? [Concomitant]
     Active Substance: VALACYCLOVIR HYDROCHLORIDE
     Indication: ANTIVIRAL PROPHYLAXIS
     Dosage: 1000 MILLIGRAM DAILY; TWO TABLETS A DAY
     Route: 048
     Dates: start: 20160816
  4. EMEND [Suspect]
     Active Substance: APREPITANT
     Indication: PROPHYLAXIS OF NAUSEA AND VOMITING
     Dosage: AT DAY 1, 2 AND 3 OF CYCLE EVERY 28 DAYS
     Route: 048
     Dates: start: 20160816, end: 20160817
  5. ENDOXAN [Suspect]
     Active Substance: CYCLOPHOSPHAMIDE
     Indication: HODGKIN^S DISEASE STAGE IV
     Dosage: 1880 MG ONCE EVERY 28 DAYS
     Dates: start: 20160816, end: 20160816
  6. OFLOXACINE MYLAN 200 MG, COMPRIM? PELLICUL? S?CABLE [Concomitant]
     Active Substance: OFLOXACIN
     Indication: ANTIBIOTIC PROPHYLAXIS
     Dosage: 200 MILLIGRAM DAILY; 200 MG TWICE A DAY
     Route: 048
     Dates: start: 20160810
  7. ETOPOSIDE MYLAN 20 MG/ML, SOLUTION ? DILUER POUR PERFUSION [Suspect]
     Active Substance: ETOPOSIDE
     Indication: HODGKIN^S DISEASE STAGE IV
     Dosage: (UNIT DOSE: 20 MG/ML) AT DAY 1, 2 AND 3 EVERY 20 DAYS (310 MG)
     Route: 042
     Dates: start: 20160816, end: 20160817
  8. DIFFU K [Concomitant]
     Active Substance: POTASSIUM CHLORIDE
     Dosage: 1 DOSAGE FORMS DAILY; TWO DOSAGE FORMS ONCE A DAY
  9. XANAX [Concomitant]
     Active Substance: ALPRAZOLAM
     Dosage: ONE DOSAGE FORM TWICE A DAY
  10. INEXIUM [Concomitant]
     Active Substance: ESOMEPRAZOLE
     Indication: PRODUCT USED FOR UNKNOWN INDICATION
     Dosage: 20 MILLIGRAM DAILY; ONE DOSAGE FORM ONCE A DAY
  11. CORTANCYL [Suspect]
     Active Substance: PREDNISONE
     Indication: HODGKIN^S DISEASE STAGE IV
     Dosage: 60 MILLIGRAM DAILY; 60 MG (60 MG ONCE A DAY)
     Route: 048
     Dates: start: 20160817, end: 20160817
  12. UROMITEXAN [Suspect]
     Active Substance: MESNA
     Indication: PROPHYLAXIS URINARY TRACT INFECTION
     Dosage: THEN 3000 MG ORALLY
     Route: 042
     Dates: start: 20160816, end: 20160816
  13. METHYLPREDNISOLONE MYLAN [Suspect]
     Active Substance: METHYLPREDNISOLONE
     Indication: HODGKIN^S DISEASE STAGE IV
     Dosage: TO J1 CYCLES
     Route: 042
     Dates: start: 20160816, end: 20160816
  14. MATULANE [Suspect]
     Active Substance: PROCARBAZINE HYDROCHLORIDE
     Indication: HODGKIN^S DISEASE STAGE IV
     Dosage: 150 MILLIGRAM DAILY; 150 MG, ONCE A DAY
     Route: 048
     Dates: start: 20160816, end: 20160822
  15. EFFEXOR [Concomitant]
     Active Substance: VENLAFAXINE HYDROCHLORIDE
     Indication: PRODUCT USED FOR UNKNOWN INDICATION
     Dosage: ONE DOSAGE FORM IN THE MORNING AND HALF OF A DOSAGE FORM AT MIDDAY
  16. BACTRIM [Concomitant]
     Active Substance: SULFAMETHOXAZOLE\TRIMETHOPRIM
     Indication: ANTIBIOTIC PROPHYLAXIS
     Dosage: 1 MONDAY, 1 TUESDAY, 1 FRIDAY
     Route: 048
     Dates: start: 20160817

REACTIONS (1)
  - Rash maculo-papular [Recovered/Resolved]

NARRATIVE: CASE EVENT DATE: 20160818
